FAERS Safety Report 18787623 (Version 1)
Quarter: 2021Q1

REPORT INFORMATION
  Report Type: Other
  Country: US (occurrence: US)
  Receive Date: 20210125
  Receipt Date: 20210125
  Transmission Date: 20210419
  Serious: No
  Sender: FDA-Public Use
  Company Number: US-ROCHE-2678028

PATIENT
  Age: 30 Year
  Sex: Female

DRUGS (4)
  1. METHYLPREDNISOLONE. [Concomitant]
     Active Substance: METHYLPREDNISOLONE
     Dosage: STARTING AT 60 MG/D, TAPERING BY 10 MG/WK EVERY 2 WEEKS
     Route: 042
  2. RITUXIMAB. [Suspect]
     Active Substance: RITUXIMAB
     Indication: PYODERMA GANGRENOSUM
     Dosage: FOLLOWED BY A SECOND DOSE OF INTRAVENOUS RITUXIMAB, 500 MG, 14 DAYS LATER AND 2 MONTHS LATER
     Route: 042
  3. VANCOMYCIN [Concomitant]
     Active Substance: VANCOMYCIN
     Route: 042
  4. SULFAMETHOXAZOLE/TRIMETHOPRIM [Concomitant]
     Active Substance: SULFAMETHOXAZOLE\TRIMETHOPRIM
     Indication: INFECTION PROPHYLAXIS
     Route: 048

REACTIONS (1)
  - Treatment noncompliance [Unknown]
